FAERS Safety Report 4927642-9 (Version None)
Quarter: 2006Q1

REPORT INFORMATION
  Report Type: 
  Country: None (occurrence: None)
  Receive Date: 20060228
  Receipt Date: 20030605
  Transmission Date: 20060701
  Serious: Yes (Hospitalization, Disabling, Other)
  Sender: FDA-Public Use
  Company Number: US-MERCK-0306USA00831

PATIENT
  Age: 54 Year
  Sex: Female
  Weight: 73 kg

DRUGS (10)
  1. VIOXX [Suspect]
     Indication: ARTHRITIS
     Route: 048
     Dates: start: 20010101, end: 20040801
  2. VIOXX [Suspect]
     Route: 048
     Dates: start: 20010101, end: 20040801
  3. OS-CAL [Concomitant]
     Route: 048
  4. CENTRUM [Concomitant]
     Route: 048
  5. HYDROCHLOROTHIAZIDE AND TRIAMTERENE [Concomitant]
     Route: 048
  6. ADALAT [Concomitant]
     Route: 065
  7. ZOLOFT [Concomitant]
     Route: 065
  8. ATIVAN [Concomitant]
     Route: 065
  9. ELAVIL [Concomitant]
     Route: 065
  10. EXTRA STRENGTH TYLENOL [Concomitant]
     Route: 065

REACTIONS (43)
  - ACUTE SINUSITIS [None]
  - ADVERSE EVENT [None]
  - ANXIETY [None]
  - ASTHMA [None]
  - ATELECTASIS [None]
  - BRONCHITIS [None]
  - BRONCHITIS ACUTE [None]
  - CHEST PAIN [None]
  - CHRONIC SINUSITIS [None]
  - COUGH [None]
  - CRYING [None]
  - DEPRESSION [None]
  - DIZZINESS [None]
  - DYSPHAGIA [None]
  - DYSPNOEA [None]
  - GASTRITIS [None]
  - GENERAL SYMPTOM [None]
  - HEADACHE [None]
  - HEPATIC STEATOSIS [None]
  - HOT FLUSH [None]
  - HYPERGLYCAEMIA [None]
  - HYPERTHYROIDISM [None]
  - HYPOKALAEMIA [None]
  - IRRITABLE BOWEL SYNDROME [None]
  - LUNG NEOPLASM [None]
  - LYMPHOEDEMA [None]
  - MENOPAUSE [None]
  - NASAL SEPTUM DEVIATION [None]
  - NAUSEA [None]
  - OEDEMA PERIPHERAL [None]
  - ORTHOSTATIC HYPOTENSION [None]
  - OSTEOARTHRITIS [None]
  - PHARYNGOLARYNGEAL PAIN [None]
  - POLYDIPSIA [None]
  - RHINITIS ALLERGIC [None]
  - SCIATICA [None]
  - SINUSITIS [None]
  - UPPER RESPIRATORY TRACT INFECTION [None]
  - VERTIGO POSITIONAL [None]
  - VESTIBULAR NEURONITIS [None]
  - VIRAL UPPER RESPIRATORY TRACT INFECTION [None]
  - VOMITING [None]
  - WEIGHT DECREASED [None]
